FAERS Safety Report 15766298 (Version 17)
Quarter: 2023Q1

REPORT INFORMATION
  Report Type: Report from Study
  Country: US (occurrence: US)
  Receive Date: 20181227
  Receipt Date: 20230119
  Transmission Date: 20230417
  Serious: No
  Sender: FDA-Public Use
  Company Number: US-PFIZER INC-2018438568

PATIENT
  Sex: Female

DRUGS (5)
  1. LYRICA [Suspect]
     Active Substance: PREGABALIN
     Indication: Limb injury
     Dosage: 300 MILLIGRAM, BID (300 MG, 2X/DAY)
     Route: 048
     Dates: start: 20180720
  2. LYRICA [Suspect]
     Active Substance: PREGABALIN
     Indication: Nerve injury
     Dosage: 300 MILLIGRAM, TID (EVERY 8 HOURS/ TAKE 1 CAPSULE (300 MG TOTAL) BY MOUTH 3 TIMES DAILY)
     Route: 048
  3. LYRICA [Suspect]
     Active Substance: PREGABALIN
     Indication: Polyneuropathy
  4. LYRICA [Suspect]
     Active Substance: PREGABALIN
     Indication: Neuralgia
  5. LYRICA [Suspect]
     Active Substance: PREGABALIN
     Indication: Neuritis

REACTIONS (6)
  - Illness [Unknown]
  - Influenza like illness [Unknown]
  - Nasopharyngitis [Unknown]
  - Pain [Unknown]
  - Prescribed overdose [Unknown]
  - Off label use [Unknown]
